FAERS Safety Report 10066554 (Version 2)
Quarter: 2014Q2

REPORT INFORMATION
  Report Type: Report from Study
  Country: US (occurrence: US)
  Receive Date: 20140408
  Receipt Date: 20140408
  Transmission Date: 20141212
  Serious: Yes (Death)
  Sender: FDA-Public Use
  Company Number: US-TEVA-467619USA

PATIENT
  Age: 78 Year
  Sex: Male

DRUGS (1)
  1. CLOZAPINE [Suspect]
     Indication: DEPRESSION
     Route: 048

REACTIONS (2)
  - Cardiac failure [Fatal]
  - Somnolence [Fatal]
